FAERS Safety Report 22038799 (Version 1)
Quarter: 2023Q1

REPORT INFORMATION
  Report Type: Spontaneous
  Country: IT (occurrence: IT)
  Receive Date: 20230227
  Receipt Date: 20230227
  Transmission Date: 20230418
  Serious: Yes (Other)
  Sender: FDA-Public Use
  Company Number: None

PATIENT
  Age: 64 Year
  Sex: Male
  Weight: 91 kg

DRUGS (2)
  1. NIVOLUMAB [Suspect]
     Active Substance: NIVOLUMAB
     Indication: Superficial spreading melanoma stage IV
     Dosage: NIVOLUMAB 1MG/KG OGNI 21 GIORNI
     Route: 042
     Dates: start: 20221215
  2. IPILIMUMAB [Suspect]
     Active Substance: IPILIMUMAB
     Indication: Superficial spreading melanoma stage IV
     Dosage: 3 MG/KG OGNI 21 GIORNI
     Route: 042
     Dates: start: 20221215

REACTIONS (3)
  - Renal failure [Recovered/Resolved]
  - Diarrhoea [Recovered/Resolved]
  - Tumour associated fever [Recovered/Resolved with Sequelae]

NARRATIVE: CASE EVENT DATE: 20230106
